FAERS Safety Report 10344450 (Version 1)
Quarter: 2014Q3

REPORT INFORMATION
  Report Type: Spontaneous
  Country: FR (occurrence: None)
  Receive Date: 20140724
  Receipt Date: 20140724
  Transmission Date: 20150326
  Serious: Yes (Hospitalization)
  Sender: FDA-Public Use
  Company Number: SYM-2014-23291

PATIENT
  Age: 32 Year
  Sex: Female

DRUGS (7)
  1. LORATADINE (LORATADINE) (LORATADINE) [Concomitant]
     Active Substance: LORATADINE
  2. INSPRA [Concomitant]
     Active Substance: EPLERENONE
  3. MONO-TILDIEM LP (DILTIAZEM HYDROCHLORIDE) [Suspect]
     Active Substance: DILTIAZEM
     Indication: HYPERTENSION
     Dosage: 1 DOSAGE FORMS, DAILY, ORAL
     Route: 048
     Dates: start: 20140608, end: 20140618
  4. AMLOR (AMLODIPINE BESILATE) [Concomitant]
     Active Substance: AMLODIPINE BESYLATE
  5. ALL OTHER THERAPEUTIC PRODUCTS (ALL OTHER THERAPEUTICS PRODUCTS) [Concomitant]
  6. DIAMICRON [Concomitant]
     Active Substance: GLICLAZIDE
  7. DECORENONE [Concomitant]

REACTIONS (4)
  - Lymphadenopathy [None]
  - Toxic skin eruption [None]
  - Rash maculo-papular [None]
  - Viral infection [None]

NARRATIVE: CASE EVENT DATE: 20140616
